FAERS Safety Report 12334248 (Version 1)
Quarter: 2016Q2

REPORT INFORMATION
  Report Type: Report from Study
  Country: PL (occurrence: PL)
  Receive Date: 20160504
  Receipt Date: 20160504
  Transmission Date: 20160815
  Serious: Yes (Other)
  Sender: FDA-Public Use
  Company Number: PHHY2016PL055878

PATIENT
  Age: 14 Year
  Sex: Male
  Weight: 57.8 kg

DRUGS (2)
  1. EXJADE [Suspect]
     Active Substance: DEFERASIROX
     Indication: ACUTE LYMPHOCYTIC LEUKAEMIA
     Dosage: 1000 MG, (17 MG/KG OF BODY MASS)
     Route: 048
     Dates: start: 20140630
  2. VIGANTOLETTEN [Concomitant]
     Active Substance: CHOLECALCIFEROL
     Indication: PRODUCT USED FOR UNKNOWN INDICATION
     Dosage: 1 DF, BID (1 X 1 TABLET)
     Route: 065

REACTIONS (6)
  - Vitreous disorder [Unknown]
  - Gastric disorder [Unknown]
  - Blood creatinine increased [Unknown]
  - Dyspepsia [Unknown]
  - Abdominal pain [Unknown]
  - Transaminases increased [Unknown]

NARRATIVE: CASE EVENT DATE: 20140708
